FAERS Safety Report 5460678-0 (Version None)
Quarter: 2007Q3

REPORT INFORMATION
  Report Type: 
  Country: None (occurrence: None)
  Receive Date: 20070919
  Receipt Date: 20070911
  Transmission Date: 20080115
  Serious: Yes (Death, Hospitalization, Other)
  Sender: FDA-Public Use
  Company Number: FR-ABBOTT-07P-056-0374824-00

PATIENT
  Sex: Male

DRUGS (13)
  1. ZECLAR [Suspect]
     Indication: HELICOBACTER INFECTION
     Route: 048
     Dates: start: 20070612, end: 20070628
  2. COLCHICINE [Interacting]
     Indication: DRUG USE FOR UNKNOWN INDICATION
     Route: 048
  3. ALLOPURINOL [Suspect]
     Indication: DRUG USE FOR UNKNOWN INDICATION
     Route: 048
  4. FUROSEMIDE [Suspect]
     Indication: DRUG USE FOR UNKNOWN INDICATION
     Route: 048
  5. METFORMIN HYDROCHLORIDE [Suspect]
     Indication: DRUG USE FOR UNKNOWN INDICATION
     Route: 048
  6. CONVERTING ENZYME INHIBITOR [Concomitant]
     Indication: DRUG USE FOR UNKNOWN INDICATION
  7. TIABENDAZOLE [Concomitant]
     Indication: DRUG USE FOR UNKNOWN INDICATION
  8. RILMENIDINE [Concomitant]
     Indication: DRUG USE FOR UNKNOWN INDICATION
  9. ATENOLOL [Concomitant]
     Indication: DRUG USE FOR UNKNOWN INDICATION
  10. ASPIRIN [Concomitant]
     Indication: DRUG USE FOR UNKNOWN INDICATION
  11. CALCIFEDIOL ANHYDRE [Concomitant]
     Indication: DRUG USE FOR UNKNOWN INDICATION
  12. INSULIN [Concomitant]
     Indication: DRUG USE FOR UNKNOWN INDICATION
  13. ALFACALCIDOL [Concomitant]
     Indication: DRUG USE FOR UNKNOWN INDICATION

REACTIONS (29)
  - AGRANULOCYTOSIS [None]
  - ANURIA [None]
  - BICYTOPENIA [None]
  - BLOOD CREATINE PHOSPHOKINASE INCREASED [None]
  - BLOOD DISORDER [None]
  - CARDIAC FAILURE [None]
  - CONNECTIVE TISSUE DISORDER [None]
  - CYTOLYTIC HEPATITIS [None]
  - DISABILITY [None]
  - DRUG INTERACTION [None]
  - HAEMODYNAMIC INSTABILITY [None]
  - HEPATITIS ACUTE [None]
  - HYPERLACTACIDAEMIA [None]
  - INFECTIVE MYOSITIS [None]
  - INFLAMMATION [None]
  - MOTOR DYSFUNCTION [None]
  - MULTI-ORGAN FAILURE [None]
  - MYOPATHY [None]
  - MYOPATHY TOXIC [None]
  - MYOSITIS [None]
  - NEUROMYOPATHY [None]
  - PAIN [None]
  - PANCYTOPENIA [None]
  - PARALYSIS [None]
  - RENAL FAILURE ACUTE [None]
  - RENAL FAILURE CHRONIC [None]
  - SEPSIS SYNDROME [None]
  - SEPTIC SHOCK [None]
  - VIRAL INFECTION [None]
